FAERS Safety Report 14524127 (Version 1)
Quarter: 2018Q1

REPORT INFORMATION
  Report Type: Spontaneous
  Country: BR (occurrence: BR)
  Receive Date: 20180213
  Receipt Date: 20180213
  Transmission Date: 20180509
  Serious: Yes (Death, Life-Threatening, Hospitalization, Other)
  Sender: FDA-Public Use
  Company Number: BR-FLAMINGO-001121

PATIENT
  Weight: 2.8 kg

DRUGS (4)
  1. AMIKACIN [Suspect]
     Active Substance: AMIKACIN
     Indication: PROPHYLAXIS
  2. METRONIDAZOLE. [Suspect]
     Active Substance: METRONIDAZOLE
     Indication: PROPHYLAXIS
  3. CEFTRIAXONE. [Suspect]
     Active Substance: CEFTRIAXONE
     Indication: PROPHYLAXIS
  4. OXACILLIN [Suspect]
     Active Substance: OXACILLIN SODIUM
     Indication: PROPHYLAXIS

REACTIONS (2)
  - Candida infection [Fatal]
  - Fungal sepsis [Fatal]
